FAERS Safety Report 5928451-4 (Version None)
Quarter: 2008Q4

REPORT INFORMATION
  Report Type: 
  Country: None (occurrence: None)
  Receive Date: 20081020
  Receipt Date: 20081009
  Transmission Date: 20090506
  Serious: Yes (Hospitalization)
  Sender: FDA-Public Use
  Company Number: WAES 0810USA01959

PATIENT
  Age: 84 Year
  Sex: Female

DRUGS (6)
  1. AMILORIDE HCL AND HYDROCHLOROTHIAZIDE [Suspect]
     Indication: HYPERTENSION
     Dosage: 5/50 MG/DAILY, PO
     Route: 048
     Dates: end: 20080403
  2. ESCITALOPRAM OXALATE [Suspect]
     Indication: DEPRESSION
     Dosage: 10 MG/DAILY, PO
     Route: 048
     Dates: start: 20080101
  3. ADARTREL [Concomitant]
  4. METFORMIN HCL [Concomitant]
  5. IDAPTAN [Concomitant]
  6. LORAZEPAM [Concomitant]

REACTIONS (8)
  - ANOREXIA [None]
  - ASTHENIA [None]
  - DISORIENTATION [None]
  - DRUG INTERACTION [None]
  - HYPOKALAEMIA [None]
  - HYPONATRAEMIA [None]
  - MALAISE [None]
  - MUSCULAR WEAKNESS [None]
